FAERS Safety Report 24898216 (Version 2)
Quarter: 2025Q1

REPORT INFORMATION
  Report Type: Spontaneous
  Country: TW (occurrence: TW)
  Receive Date: 20250129
  Receipt Date: 20250213
  Transmission Date: 20250409
  Serious: Yes (Death, Other)
  Sender: CELLTRION
  Company Number: TW-CELLTRION INC.-2025TW002253

PATIENT

DRUGS (2)
  1. TRUXIMA [Suspect]
     Active Substance: RITUXIMAB-ABBS
     Indication: Rheumatoid arthritis
     Route: 042
     Dates: start: 20240705, end: 20240720
  2. TRUXIMA [Suspect]
     Active Substance: RITUXIMAB-ABBS
     Route: 042
     Dates: start: 20240705, end: 20240720

REACTIONS (5)
  - Seizure [Fatal]
  - Respiratory failure [Fatal]
  - Pneumonia [Fatal]
  - Sepsis [Fatal]
  - Underdose [Unknown]

NARRATIVE: CASE EVENT DATE: 20250115
